FAERS Safety Report 9186820 (Version 2)
Quarter: 2013Q2

REPORT INFORMATION
  Report Type: Report from Study
  Country: US (occurrence: US)
  Receive Date: 20130325
  Receipt Date: 20130412
  Transmission Date: 20140414
  Serious: No
  Sender: FDA-Public Use
  Company Number: US-VERTEX PHARMACEUTICALS INC.-2013-004004

PATIENT
  Age: 56 Year
  Sex: Male
  Weight: 81 kg

DRUGS (9)
  1. VX-950 (TELAPREVIR) [Suspect]
     Indication: HEPATITIS C
     Dosage: 750 MG, TID
     Route: 048
     Dates: start: 20130315
  2. PEGASYS [Suspect]
     Indication: HEPATITIS C
     Dosage: 180 ?G, UNK
  3. RIBAPAK [Suspect]
     Indication: HEPATITIS C
     Dosage: 1200/ DAY
  4. CITALOPRAM [Concomitant]
     Dosage: 10 MG, UNK
  5. PREVACID [Concomitant]
     Dosage: 15 MG, UNK
  6. LOSARTAN/HCT [Concomitant]
     Dosage: 100-12.5
  7. SUDAFED 24 HOUR [Concomitant]
     Dosage: 240 MG, UNK
  8. TYLENOL /00020001/ [Concomitant]
  9. ADVIL                              /00044201/ [Concomitant]
     Dosage: 200 MG, UNK

REACTIONS (7)
  - Dizziness [Unknown]
  - Abdominal pain upper [Unknown]
  - Insomnia [Unknown]
  - Chills [Unknown]
  - Constipation [Unknown]
  - Fatigue [Unknown]
  - Nausea [Unknown]
